FAERS Safety Report 6238240-1 (Version None)
Quarter: 2009Q2

REPORT INFORMATION
  Report Type: 
  Country: None (occurrence: None)
  Receive Date: 20090617
  Receipt Date: 20090617
  Transmission Date: 20091009
  Serious: Yes (Other)
  Sender: FDA-Public Use
  Company Number: None

PATIENT
  Age: 69 Year
  Sex: Female
  Weight: 84.8226 kg

DRUGS (1)
  1. CIPROFLOXACIN 500MG IVAX PHARMACEUTICALS [Suspect]
     Indication: URINARY TRACT INFECTION
     Dosage: 1 500 MG TABLET 2 TIMES DAY PO
     Route: 048
     Dates: start: 20090604, end: 20090608

REACTIONS (3)
  - ARTHRALGIA [None]
  - LIMB DISCOMFORT [None]
  - TENDONITIS [None]
